FAERS Safety Report 7593433-6 (Version None)
Quarter: 2011Q3

REPORT INFORMATION
  Report Type: 
  Country: None (occurrence: None)
  Receive Date: 20110706
  Receipt Date: 20110701
  Transmission Date: 20111222
  Serious: Yes (Other)
  Sender: FDA-Public Use
  Company Number: DE-MERCK-1107DEU00006

PATIENT
  Age: 78 Year
  Sex: Female

DRUGS (2)
  1. CORTISONE [Concomitant]
     Route: 065
  2. FOSAMAX [Suspect]
     Route: 048
     Dates: start: 20090101, end: 20100601

REACTIONS (4)
  - OSTEONECROSIS OF JAW [None]
  - PERIODONTITIS [None]
  - SURGERY [None]
  - TOOTH EXTRACTION [None]
